FAERS Safety Report 19377535 (Version 1)
Quarter: 2021Q2

REPORT INFORMATION
  Report Type: Report from Study
  Country: KR (occurrence: KR)
  Receive Date: 20210605
  Receipt Date: 20210605
  Transmission Date: 20210717
  Serious: Yes (Other)
  Sender: FDA-Public Use
  Company Number: KR-AMGEN-KORCT2021084328

PATIENT
  Age: 61 Year
  Sex: Female

DRUGS (44)
  1. DARBEPOETIN ALFA [Concomitant]
     Active Substance: DARBEPOETIN ALFA
     Dosage: 100 UNK
     Route: 065
     Dates: start: 20080821, end: 20080829
  2. DARBEPOETIN ALFA [Concomitant]
     Active Substance: DARBEPOETIN ALFA
     Dosage: 120 UNK
     Route: 065
     Dates: start: 20080930, end: 20080930
  3. DEXAMETHASONE. [Concomitant]
     Active Substance: DEXAMETHASONE
     Dosage: UNK
     Dates: start: 20080829, end: 20080831
  4. DEXAMETHASONE. [Concomitant]
     Active Substance: DEXAMETHASONE
     Dosage: 3.75 MILLIGRAM
     Dates: start: 20080829, end: 20080831
  5. FOLIC ACID. [Concomitant]
     Active Substance: FOLIC ACID
     Indication: PRODUCT USED FOR UNKNOWN INDICATION
     Dosage: 1 MILLIGRAM
     Dates: start: 20080715, end: 20080804
  6. FOLIC ACID. [Concomitant]
     Active Substance: FOLIC ACID
     Dosage: 1 MILLIGRAM
     Dates: start: 20080830, end: 20080921
  7. PARACETAMOL [Concomitant]
     Active Substance: ACETAMINOPHEN
     Dosage: 325 MILLIGRAM
     Dates: start: 20080930, end: 20081001
  8. PEMETREXED. [Concomitant]
     Active Substance: PEMETREXED
     Dosage: 775 MILLIGRAM
     Dates: start: 20080805, end: 20080805
  9. PEMETREXED. [Concomitant]
     Active Substance: PEMETREXED
     Dosage: 775 MILLIGRAM
     Dates: start: 20080830, end: 20080830
  10. DARBEPOETIN ALFA [Concomitant]
     Active Substance: DARBEPOETIN ALFA
     Dosage: 120 UNK
     Route: 065
     Dates: start: 20080909, end: 20080916
  11. DEXAMETHASONE. [Concomitant]
     Active Substance: DEXAMETHASONE
     Dosage: UNK
     Dates: start: 20080921, end: 20080923
  12. DOMPERIDONE [Concomitant]
     Active Substance: DOMPERIDONE
     Indication: PRODUCT USED FOR UNKNOWN INDICATION
     Dosage: 10 MILLIGRAM
     Dates: start: 20081111, end: 20081124
  13. FOLIC ACID. [Concomitant]
     Active Substance: FOLIC ACID
     Dosage: 1 MILLIGRAM
     Dates: start: 20081022, end: 20081125
  14. ALBUMIN [Concomitant]
     Active Substance: ALBUMIN HUMAN
     Indication: PRODUCT USED FOR UNKNOWN INDICATION
     Dosage: 100 UNK
     Dates: start: 20080822, end: 20080822
  15. DARBEPOETIN ALFA [Concomitant]
     Active Substance: DARBEPOETIN ALFA
     Dosage: 120 UNK
     Route: 065
     Dates: start: 20080722, end: 20080722
  16. DEXAMETHASONE. [Concomitant]
     Active Substance: DEXAMETHASONE
     Indication: PRODUCT USED FOR UNKNOWN INDICATION
     Dosage: UNK
     Dates: start: 20080714, end: 20080716
  17. DEXAMETHASONE. [Concomitant]
     Active Substance: DEXAMETHASONE
     Dosage: UNK
     Dates: start: 20080804, end: 20080806
  18. DEXAMETHASONE. [Concomitant]
     Active Substance: DEXAMETHASONE
     Dosage: UNK
     Dates: start: 20081021, end: 20081023
  19. DEXAMETHASONE. [Concomitant]
     Active Substance: DEXAMETHASONE
     Dosage: 3.75 MILLIGRAM
     Dates: start: 20081021, end: 20081023
  20. HYDROCHLOROTHIAZIDE. [Concomitant]
     Active Substance: HYDROCHLOROTHIAZIDE
     Indication: PRODUCT USED FOR UNKNOWN INDICATION
     Dosage: 12.5 MILLIGRAM
     Dates: start: 20080805, end: 20080829
  21. MEGESTROLO [Concomitant]
     Indication: PRODUCT USED FOR UNKNOWN INDICATION
     Dosage: 200 MILLIGRAM
     Dates: start: 20081111, end: 20081124
  22. PEMETREXED. [Concomitant]
     Active Substance: PEMETREXED
     Dosage: 775 MILLIGRAM
     Dates: start: 20080922, end: 20080922
  23. DARBEPOETIN ALFA [Concomitant]
     Active Substance: DARBEPOETIN ALFA
     Dosage: 100 UNK
     Route: 065
     Dates: start: 20080930, end: 20080930
  24. DARBEPOETIN ALFA [Concomitant]
     Active Substance: DARBEPOETIN ALFA
     Dosage: 120 UNK
     Route: 065
     Dates: start: 20081021, end: 20081021
  25. DEXAMETHASONE. [Concomitant]
     Active Substance: DEXAMETHASONE
     Dosage: 3.75 MILLIGRAM
     Dates: start: 20080921, end: 20080923
  26. FOLIC ACID. [Concomitant]
     Active Substance: FOLIC ACID
     Dosage: 1 MILLIGRAM
     Dates: start: 20080805, end: 20080829
  27. METOCLOPRAMIDE. [Concomitant]
     Active Substance: METOCLOPRAMIDE
     Indication: PRODUCT USED FOR UNKNOWN INDICATION
     Dosage: 10 MILLIGRAM
     Dates: start: 20080715, end: 20080715
  28. PEMETREXED. [Concomitant]
     Active Substance: PEMETREXED
     Indication: PRODUCT USED FOR UNKNOWN INDICATION
     Dosage: 775 MILLIGRAM
     Dates: start: 20080715, end: 20080715
  29. DARBEPOETIN ALFA [Concomitant]
     Active Substance: DARBEPOETIN ALFA
     Dosage: 100 UNK
     Route: 065
     Dates: start: 20081021, end: 20081021
  30. DEXAMETHASONE. [Concomitant]
     Active Substance: DEXAMETHASONE
     Dosage: 3.75 MILLIGRAM
     Dates: start: 20080714, end: 20080716
  31. FOLIC ACID. [Concomitant]
     Active Substance: FOLIC ACID
     Dosage: 1 MILLIGRAM
     Dates: start: 20080922, end: 20081021
  32. PARACETAMOL [Concomitant]
     Active Substance: ACETAMINOPHEN
     Dosage: 325 MILLIGRAM
     Dates: start: 20080930, end: 20081001
  33. DARBEPOETIN ALFA [Concomitant]
     Active Substance: DARBEPOETIN ALFA
     Indication: PRODUCT USED FOR UNKNOWN INDICATION
     Dosage: 100 UNK
     Route: 065
     Dates: start: 20080722, end: 20080725
  34. DARBEPOETIN ALFA [Concomitant]
     Active Substance: DARBEPOETIN ALFA
     Dosage: 120 UNK
     Route: 065
     Dates: start: 20080821, end: 20080829
  35. DEXAMETHASONE. [Concomitant]
     Active Substance: DEXAMETHASONE
     Dosage: 3.75 MILLIGRAM
     Dates: start: 20080804, end: 20080806
  36. METOCLOPRAMIDE. [Concomitant]
     Active Substance: METOCLOPRAMIDE
     Dosage: 10 MILLIGRAM
     Dates: start: 20080922, end: 20080922
  37. PEMETREXED. [Concomitant]
     Active Substance: PEMETREXED
     Dosage: 775 MILLIGRAM
     Dates: start: 20081022, end: 20081022
  38. DARBEPOETIN ALFA [Concomitant]
     Active Substance: DARBEPOETIN ALFA
     Dosage: 100 UNK
     Route: 065
     Dates: start: 20080909, end: 20080916
  39. DARBEPOETIN ALFA [Concomitant]
     Active Substance: DARBEPOETIN ALFA
     Dosage: 100 UNK
     Route: 065
     Dates: start: 20081028, end: 20081028
  40. FILGRASTIM [Suspect]
     Active Substance: FILGRASTIM
     Indication: PRODUCT USED FOR UNKNOWN INDICATION
     Dosage: 150 UNK
     Route: 065
     Dates: start: 20080814, end: 20080814
  41. DARBEPOETIN ALFA [Concomitant]
     Active Substance: DARBEPOETIN ALFA
     Dosage: 120 UNK
     Route: 065
     Dates: start: 20081028, end: 20081028
  42. METOCLOPRAMIDE. [Concomitant]
     Active Substance: METOCLOPRAMIDE
     Dosage: 10 MILLIGRAM
     Dates: start: 20080830, end: 20080830
  43. PARACETAMOL [Concomitant]
     Active Substance: ACETAMINOPHEN
     Indication: PRODUCT USED FOR UNKNOWN INDICATION
     Dosage: 325 MILLIGRAM
     Dates: start: 20080902, end: 20080904
  44. PARACETAMOL [Concomitant]
     Active Substance: ACETAMINOPHEN
     Dosage: 325 MILLIGRAM
     Dates: start: 20080902, end: 20080904

REACTIONS (7)
  - Decreased appetite [Recovered/Resolved]
  - Upper respiratory tract infection [Recovered/Resolved]
  - Leukocytosis [Recovered/Resolved]
  - Oedema [Recovered/Resolved]
  - Anaemia [Not Recovered/Not Resolved]
  - Dyspepsia [Recovered/Resolved]
  - Granulocytopenia [Recovered/Resolved]

NARRATIVE: CASE EVENT DATE: 20080722
